FAERS Safety Report 17416353 (Version 2)
Quarter: 2025Q2

REPORT INFORMATION
  Report Type: Report from Study
  Country: US (occurrence: US)
  Receive Date: 20200213
  Receipt Date: 20250610
  Transmission Date: 20250716
  Serious: No
  Sender: TAKEDA
  Company Number: US-TAKEDA-2020TUS009059

PATIENT
  Sex: Female
  Weight: 58 kg

DRUGS (3)
  1. IXAZOMIB [Suspect]
     Active Substance: IXAZOMIB
     Indication: Plasma cell myeloma
     Dosage: 4 MILLIGRAM, Q3WEEKS
  2. IXAZOMIB [Suspect]
     Active Substance: IXAZOMIB
  3. LENALIDOMIDE [Suspect]
     Active Substance: LENALIDOMIDE
     Indication: Product used for unknown indication

REACTIONS (4)
  - No adverse event [Unknown]
  - Product physical issue [Unknown]
  - Product dose omission issue [Unknown]
  - Accidental exposure to product [Unknown]
